FAERS Safety Report 8832452 (Version 1)
Quarter: 2012Q4

REPORT INFORMATION
  Report Type: Spontaneous
  Country: US (occurrence: None)
  Receive Date: 20121005
  Receipt Date: 20121005
  Transmission Date: 20130627
  Serious: Yes (Hospitalization)
  Sender: FDA-Public Use
  Company Number: None

PATIENT
  Age: 64 Year
  Sex: Male
  Weight: 66.7 kg

DRUGS (2)
  1. DABIGATRAN [Suspect]
     Indication: ATRIAL FIBRILLATION
     Dosage: 150 MG BID PO
     Route: 048
     Dates: start: 20120823, end: 20120912
  2. ETODOLAC [Suspect]
     Dosage: 400 MG PRN PO
     Route: 048
     Dates: start: 20110607, end: 20120913

REACTIONS (8)
  - Faeces discoloured [None]
  - Fatigue [None]
  - Abdominal pain [None]
  - Haemoglobin decreased [None]
  - International normalised ratio increased [None]
  - Haemorrhage [None]
  - Gastric haemorrhage [None]
  - Upper gastrointestinal haemorrhage [None]
